FAERS Safety Report 8916493 (Version 1)
Quarter: 2012Q4

REPORT INFORMATION
  Report Type: 
  Country: US (occurrence: US)
  Receive Date: 20121120
  Receipt Date: 20121120
  Transmission Date: 20130627
  Serious: No
  Sender: FDA-Public Use
  Company Number: US-B.I. PHARMACEUTICALS,INC./RIDGEFIELD-2012-BI-00836BP

PATIENT
  Sex: Female
  Weight: 44 kg

DRUGS (7)
  1. MICARDIS [Suspect]
     Indication: HYPERTENSION
     Dosage: 40 mg
     Route: 048
     Dates: start: 201208
  2. SPIRIVA [Suspect]
     Indication: CHRONIC OBSTRUCTIVE PULMONARY DISEASE
     Dosage: 18 mcg
     Route: 055
     Dates: start: 201211
  3. ASPIRIN [Concomitant]
     Dosage: 81 mg
     Route: 048
  4. FLECAINIDE [Concomitant]
     Indication: ATRIAL FIBRILLATION
     Dosage: 100 mg
     Route: 048
  5. SINGULAIR [Concomitant]
     Dosage: 10 mg
     Route: 048
  6. ADVAIR [Concomitant]
     Route: 055
  7. PAXIL [Concomitant]
     Dosage: 20 mg
     Route: 048

REACTIONS (6)
  - Back pain [Not Recovered/Not Resolved]
  - Pain [Not Recovered/Not Resolved]
  - Pruritus [Not Recovered/Not Resolved]
  - Rash [Not Recovered/Not Resolved]
  - Epistaxis [Recovered/Resolved]
  - Paraesthesia [Recovered/Resolved]
